FAERS Safety Report 6099388-8 (Version None)
Quarter: 2009Q1

REPORT INFORMATION
  Report Type: 
  Country: None (occurrence: None)
  Receive Date: 20090303
  Receipt Date: 20090218
  Transmission Date: 20090719
  Serious: Yes (Death)
  Sender: FDA-Public Use
  Company Number: US-PFIZER INC-2009175664

PATIENT
  Sex: Male
  Weight: 79.365 kg

DRUGS (10)
  1. GEODON [Suspect]
     Route: 048
     Dates: start: 20081206
  2. CLONIDINE [Concomitant]
     Dosage: 0.1 MG, AS NEEDED
  3. KLONOPIN [Concomitant]
     Dosage: 0.5 MG, 2X/DAY
  4. SEROQUEL [Concomitant]
     Dosage: 75 MG, UNK
  5. EFFEXOR [Concomitant]
     Dosage: 150 MG, UNK
  6. TRAZODONE HYDROCHLORIDE [Concomitant]
     Dosage: 150 MG, 1X/DAY
  7. ADVAIR HFA [Concomitant]
     Dosage: UNK
  8. CIPRO [Concomitant]
     Dosage: 500 MG, 1X/DAY
  9. COMBIVENT [Concomitant]
     Dosage: 2 UNK, 1X/DAY
  10. ALBUTEROL [Concomitant]

REACTIONS (1)
  - DEATH [None]
